FAERS Safety Report 12961794 (Version 1)
Quarter: 2016Q4

REPORT INFORMATION
  Report Type: Spontaneous
  Country: US (occurrence: US)
  Receive Date: 20161121
  Receipt Date: 20161121
  Transmission Date: 20170207
  Serious: No
  Sender: FDA-Public Use
  Company Number: US-PFIZER INC-2016530268

PATIENT
  Sex: Male

DRUGS (3)
  1. AMOXICILLIN SODIUM W/CLAVULANATE POTASSIUM [Suspect]
     Active Substance: AMOXICILLIN\CLAVULANATE POTASSIUM
     Indication: INFECTION
     Dosage: 1 DF, 2X/DAY; AMOXICILLIN 875MG/CLAVULANIC ACID 125MG]
  2. CLINDAMYCIN HCL [Suspect]
     Active Substance: CLINDAMYCIN HYDROCHLORIDE
     Indication: INFECTION
     Dosage: 300 MG, 3X/DAY
  3. CIPRO [Concomitant]
     Active Substance: CIPROFLOXACIN HYDROCHLORIDE
     Dosage: 750 MG, UNK

REACTIONS (1)
  - Drug ineffective [Not Recovered/Not Resolved]
